FAERS Safety Report 21639838 (Version 4)
Quarter: 2023Q4

REPORT INFORMATION
  Report Type: Spontaneous
  Country: IT (occurrence: None)
  Receive Date: 20221124
  Receipt Date: 20231106
  Transmission Date: 20240109
  Serious: Yes (Hospitalization, Other)
  Sender: FDA-Public Use
  Company Number: IT-ROCHE-3222017

PATIENT
  Age: 42 Year
  Sex: Male

DRUGS (3)
  1. OCREVUS [Suspect]
     Active Substance: OCRELIZUMAB
     Indication: Relapsing-remitting multiple sclerosis
     Route: 042
  2. ROSUMIBE (ITALY) [Concomitant]
  3. INTERFERON ALFA-1A [Concomitant]
     Active Substance: INTERFERON ALFA-1A

REACTIONS (15)
  - Acute respiratory failure [Unknown]
  - Pulmonary oedema [Unknown]
  - Cardiac disorder [Unknown]
  - Ejection fraction decreased [Unknown]
  - Fibrin D dimer increased [Unknown]
  - White blood cell count increased [Unknown]
  - Myocarditis [Unknown]
  - Left ventricular dysfunction [Unknown]
  - Dyspnoea [Unknown]
  - Demyelination [Unknown]
  - Escherichia infection [Unknown]
  - Cardiogenic shock [Unknown]
  - Sepsis [Unknown]
  - Relapsing-remitting multiple sclerosis [Unknown]
  - Cardiotoxicity [Unknown]

NARRATIVE: CASE EVENT DATE: 20221130
